FAERS Safety Report 16884577 (Version 2)
Quarter: 2020Q3

REPORT INFORMATION
  Report Type: Report from Study
  Country: FR (occurrence: FR)
  Receive Date: 20191004
  Receipt Date: 20191011
  Transmission Date: 20201105
  Serious: Yes (Death, Hospitalization)
  Sender: FDA-Public Use
  Company Number: FR-PFIZER INC-2019425430

PATIENT
  Sex: Female

DRUGS (1)
  1. TALAZOPARIB. [Suspect]
     Active Substance: TALAZOPARIB
     Dosage: UNK

REACTIONS (1)
  - Neoplasm progression [Fatal]

NARRATIVE: CASE EVENT DATE: 201909
